FAERS Safety Report 21050299 (Version 1)
Quarter: 2022Q3

REPORT INFORMATION
  Report Type: Spontaneous
  Country: US (occurrence: None)
  Receive Date: 20220707
  Receipt Date: 20220707
  Transmission Date: 20221027
  Serious: No
  Sender: FDA-Public Use
  Company Number: 2022A214380

PATIENT
  Age: 73 Year
  Sex: Female

DRUGS (1)
  1. FASENRA [Suspect]
     Active Substance: BENRALIZUMAB
     Indication: Asthma
     Dosage: CURRENTLY FREQUENCY WAS NOT AVAILABLE BUT NURSE STATED SHE WAS PRESCRIBED TO INJECT AT 0, 4 AND ...
     Route: 058
     Dates: end: 2021

REACTIONS (7)
  - Fatigue [Unknown]
  - Cough [Unknown]
  - Diabetes mellitus [Unknown]
  - Stress [Unknown]
  - Intentional product misuse [Unknown]
  - Inability to afford medication [Unknown]
  - Product use issue [Unknown]

NARRATIVE: CASE EVENT DATE: 20210101
